FAERS Safety Report 6154049-1 (Version None)
Quarter: 2009Q2

REPORT INFORMATION
  Report Type: 
  Country: None (occurrence: None)
  Receive Date: 20090410
  Receipt Date: 20090331
  Transmission Date: 20091009
  Serious: Yes (Hospitalization)
  Sender: FDA-Public Use
  Company Number: 20096460

PATIENT
  Sex: Male

DRUGS (1)
  1. LIORESAL [Suspect]
     Indication: MUSCLE SPASTICITY
     Dosage: MCG, DAILY, INTRATHECAL
     Route: 037

REACTIONS (11)
  - DEVICE RELATED INFECTION [None]
  - DRUG WITHDRAWAL SYNDROME [None]
  - ERYTHEMA [None]
  - MALNUTRITION [None]
  - PAIN [None]
  - POSTOPERATIVE WOUND INFECTION [None]
  - PREALBUMIN ABNORMAL [None]
  - SKIN INFECTION [None]
  - STAPHYLOCOCCAL INFECTION [None]
  - SWELLING [None]
  - WOUND SECRETION [None]
